FAERS Safety Report 24554127 (Version 3)
Quarter: 2025Q1

REPORT INFORMATION
  Report Type: Report from Study
  Country: IN (occurrence: IN)
  Receive Date: 20241028
  Receipt Date: 20250113
  Transmission Date: 20250409
  Serious: Yes (Death, Other)
  Sender: ROCHE
  Company Number: IN-ROCHE-10000112049

PATIENT
  Age: 66 Year
  Sex: Male

DRUGS (1)
  1. TECENTRIQ [Suspect]
     Active Substance: ATEZOLIZUMAB
     Indication: Lung adenocarcinoma
     Route: 042
     Dates: start: 20240917

REACTIONS (5)
  - Dyspnoea [Fatal]
  - Neoplasm progression [Unknown]
  - Drug ineffective [Unknown]
  - Peripheral swelling [Unknown]
  - Lung neoplasm malignant [Fatal]
